FAERS Safety Report 7866217-9 (Version None)
Quarter: 2011Q4

REPORT INFORMATION
  Report Type: 
  Country: None (occurrence: None)
  Receive Date: 20111028
  Receipt Date: 20110512
  Transmission Date: 20120403
  Serious: No
  Sender: FDA-Public Use
  Company Number: US-GLAXOSMITHKLINE-A0927158A

PATIENT
  Age: 86 Year
  Sex: Female

DRUGS (10)
  1. DILTIAZEM [Concomitant]
  2. OMEPRAZOLE [Concomitant]
  3. CALTRATE 600 + D [Concomitant]
  4. PAIN RELIEVER [Concomitant]
  5. IRON SUPPLEMENT [Concomitant]
  6. ADVAIR DISKUS 100/50 [Suspect]
     Indication: CHRONIC OBSTRUCTIVE PULMONARY DISEASE
     Dosage: 1PUFF TWICE PER DAY
     Route: 055
     Dates: start: 20010101
  7. MULTI-VITAMIN [Concomitant]
  8. UNSPECIFIED MEDICATION [Concomitant]
     Indication: GASTRIC DISORDER
  9. ASPIRIN [Concomitant]
  10. ALPRAZOLAM [Concomitant]

REACTIONS (1)
  - LIP SWELLING [None]
